FAERS Safety Report 5219354-1 (Version None)
Quarter: 2007Q1

REPORT INFORMATION
  Report Type: 
  Country: None (occurrence: None)
  Receive Date: 20070125
  Receipt Date: 20070111
  Transmission Date: 20070707
  Serious: Yes (Hospitalization)
  Sender: FDA-Public Use
  Company Number: FR-ELI_LILLY_AND_COMPANY-FR_030502390

PATIENT
  Age: 59 Year
  Sex: Female

DRUGS (10)
  1. PROZAC [Suspect]
     Dosage: UNK, UNKNOWN
     Route: 048
     Dates: end: 20030303
  2. TRANXENE [Concomitant]
     Dosage: UNK, UNKNOWN
     Route: 048
     Dates: end: 20030303
  3. ZOLPIDEM TARTRATE [Concomitant]
     Dosage: UNK, UNKNOWN
     Route: 048
  4. ALIMEMAZINE [Concomitant]
     Dosage: UNK, UNKNOWN
     Route: 048
  5. LOPRAZOLAM [Concomitant]
     Dosage: UNK, UNKNOWN
     Route: 048
  6. CYAMEMAZINE [Concomitant]
     Dosage: UNK, UNKNOWN
     Route: 048
  7. METFORMIN HCL [Concomitant]
     Indication: DIABETES MELLITUS
     Dosage: UNK, UNKNOWN
     Route: 048
  8. GLYBURIDE [Concomitant]
     Indication: DIABETES MELLITUS
     Dosage: UNK, UNKNOWN
     Route: 048
     Dates: end: 20030303
  9. ACARBOSE [Concomitant]
     Dosage: UNK, UNKNOWN
     Route: 048
     Dates: end: 20030303
  10. OXAZEPAM [Concomitant]
     Dosage: UNK, UNKNOWN
     Route: 048
     Dates: end: 20030303

REACTIONS (5)
  - AMNESIA [None]
  - DISORIENTATION [None]
  - MALAISE [None]
  - RHABDOMYOLYSIS [None]
  - URINARY INCONTINENCE [None]
